FAERS Safety Report 21347671 (Version 1)
Quarter: 2022Q3

REPORT INFORMATION
  Report Type: Spontaneous
  Country: US (occurrence: US)
  Receive Date: 20220919
  Receipt Date: 20220919
  Transmission Date: 20221027
  Serious: No
  Sender: FDA-Public Use
  Company Number: US-IGSA-BIG0017658

PATIENT
  Age: 66 Year
  Sex: Female
  Weight: 145.9 kg

DRUGS (10)
  1. ALBUTEIN [Suspect]
     Active Substance: ALBUMIN HUMAN
     Indication: Multiple sclerosis
     Dosage: 4 LITER, Q.4WK.
     Route: 042
     Dates: start: 20211112, end: 20211112
  2. ALBUTEIN [Suspect]
     Active Substance: ALBUMIN HUMAN
     Indication: Product use in unapproved indication
     Dosage: 4 LITER, Q.4WK.
     Route: 042
     Dates: start: 20211217, end: 20211217
  3. ALBUTEIN [Suspect]
     Active Substance: ALBUMIN HUMAN
     Dosage: 4 LITER, Q.4WK.
     Route: 042
     Dates: start: 20210917, end: 20210917
  4. ALBUTEIN [Suspect]
     Active Substance: ALBUMIN HUMAN
     Dosage: 4 LITER, Q.4WK.
     Route: 042
     Dates: end: 20211217
  5. IMODIUM [Concomitant]
     Active Substance: LOPERAMIDE HYDROCHLORIDE
     Indication: Premedication
     Dosage: UNK
     Dates: start: 20211217
  6. LOPERAMIDE [Concomitant]
     Active Substance: LOPERAMIDE
     Indication: Premedication
     Dosage: 2 MILLIGRAM
  7. DEXAMETHASONE [Concomitant]
     Active Substance: DEXAMETHASONE
     Indication: Premedication
     Dosage: 4 MILLIGRAM
     Route: 042
  8. ZOFRAN [Concomitant]
     Active Substance: ONDANSETRON HYDROCHLORIDE
     Indication: Premedication
  9. TYLENOL [Concomitant]
     Active Substance: ACETAMINOPHEN
     Indication: Premedication
     Dosage: 650 MILLIGRAM
  10. MAALOX S [Concomitant]
     Indication: Premedication
     Dosage: 500 MILLILITER

REACTIONS (6)
  - Diarrhoea [Unknown]
  - Nausea [Unknown]
  - Vomiting [Unknown]
  - Chills [Unknown]
  - Fatigue [Unknown]
  - Orthostatic hypotension [Unknown]

NARRATIVE: CASE EVENT DATE: 20211112
